FAERS Safety Report 20170591 (Version 1)
Quarter: 2021Q4

REPORT INFORMATION
  Report Type: Spontaneous
  Country: US (occurrence: None)
  Receive Date: 20211209
  Receipt Date: 20211209
  Transmission Date: 20220303
  Serious: Yes (Hospitalization)
  Sender: FDA-Public Use
  Company Number: None

PATIENT
  Sex: Female

DRUGS (2)
  1. SILDENAFIL [Suspect]
     Active Substance: SILDENAFIL
     Indication: Iron deficiency anaemia
     Dosage: FREQUENCY : 3 TIMES A DAY;?
     Route: 048
     Dates: start: 20190206
  2. TRACLEER [Concomitant]
     Active Substance: BOSENTAN

REACTIONS (3)
  - Oedema peripheral [None]
  - Heart rate increased [None]
  - Therapy interrupted [None]
